FAERS Safety Report 19178771 (Version 1)
Quarter: 2021Q2

REPORT INFORMATION
  Report Type: Spontaneous
  Country: US (occurrence: US)
  Receive Date: 20210423
  Receipt Date: 20210423
  Transmission Date: 20210717
  Serious: Yes (Hospitalization)
  Sender: FDA-Public Use
  Company Number: None

PATIENT
  Age: 72 Year
  Sex: Male

DRUGS (13)
  1. GABAPENTIN. [Concomitant]
     Active Substance: GABAPENTIN
  2. ASPIRIN. [Concomitant]
     Active Substance: ASPIRIN
  3. BRILINTA [Concomitant]
     Active Substance: TICAGRELOR
  4. LEVOTHYROXINE. [Concomitant]
     Active Substance: LEVOTHYROXINE
  5. CRESTOR [Concomitant]
     Active Substance: ROSUVASTATIN CALCIUM
  6. PREDNISONE. [Concomitant]
     Active Substance: PREDNISONE
  7. TESTOSTERONE. [Concomitant]
     Active Substance: TESTOSTERONE
  8. ACTEMRA [Suspect]
     Active Substance: TOCILIZUMAB
     Indication: OSTEOARTHRITIS
     Dosage: ?          OTHER DOSE:1 SYRINGE;?
     Route: 058
     Dates: start: 20201202
  9. DULOXETINE. [Concomitant]
     Active Substance: DULOXETINE
  10. ENTERSTO [Concomitant]
  11. BUPROPION. [Concomitant]
     Active Substance: BUPROPION
  12. TOPRIL [Concomitant]
  13. ULORIC [Concomitant]
     Active Substance: FEBUXOSTAT

REACTIONS (1)
  - Myocardial infarction [None]

NARRATIVE: CASE EVENT DATE: 20210413
